FAERS Safety Report 8189832-4 (Version None)
Quarter: 2012Q1

REPORT INFORMATION
  Report Type: 
  Country: None (occurrence: None)
  Receive Date: 20120307
  Receipt Date: 20110906
  Transmission Date: 20120608
  Serious: Yes (Hospitalization)
  Sender: FDA-Public Use
  Company Number: US-GLAXOSMITHKLINE-A0944338A

PATIENT
  Age: 63 Year
  Sex: Female

DRUGS (2)
  1. UNSPECIFIED [Concomitant]
  2. REQUIP [Suspect]
     Dosage: 5MG UNKNOWN
     Route: 065
     Dates: start: 20071005

REACTIONS (2)
  - PNEUMONIA [None]
  - BRONCHITIS [None]
